FAERS Safety Report 8804456 (Version 1)
Quarter: 2012Q4

REPORT INFORMATION
  Report Type: 
  Country: US (occurrence: US)
  Receive Date: 20120923
  Receipt Date: 20120923
  Transmission Date: 20130627
  Serious: Yes (Other)
  Sender: FDA-Public Use
  Company Number: US-MERCK-1209USA005964

PATIENT
  Sex: Male

DRUGS (4)
  1. SAPHRIS [Suspect]
     Dosage: 5 mg, UNK, titrated HS
  2. DEPAKOTE [Concomitant]
  3. PREVACID [Concomitant]
  4. TRILEPTAL [Concomitant]

REACTIONS (9)
  - Confusional state [Unknown]
  - Suicidal ideation [Unknown]
  - Bipolar I disorder [Unknown]
  - Insomnia [Unknown]
  - Irritability [Unknown]
  - Headache [Unknown]
  - Musculoskeletal stiffness [Unknown]
  - Somnolence [Unknown]
  - Arthralgia [Unknown]
